FAERS Safety Report 5979125-5 (Version None)
Quarter: 2008Q4

REPORT INFORMATION
  Report Type: 
  Country: None (occurrence: None)
  Receive Date: 20081204
  Receipt Date: 20080827
  Transmission Date: 20090506
  Serious: No
  Sender: FDA-Public Use
  Company Number: US-ABBOTT-08P-163-0472916-00

PATIENT
  Sex: Female
  Weight: 45.4 kg

DRUGS (4)
  1. TRICOR [Suspect]
     Indication: BLOOD CHOLESTEROL INCREASED
     Route: 048
     Dates: start: 20080701
  2. ZEIETA [Concomitant]
     Indication: BLOOD CHOLESTEROL INCREASED
     Route: 048
     Dates: start: 20080601
  3. SERTRALINE [Concomitant]
     Indication: DEPRESSION
     Dosage: 50 MG TABLETS IN AM, 25 MG 50 MG TABLET IN AM, 25 MG TABLETS IN PM
     Route: 048
     Dates: start: 20080101
  4. ALPRAZOLAM [Concomitant]
     Indication: ANXIETY
     Route: 048

REACTIONS (2)
  - EAR INFECTION [None]
  - PIGMENTATION DISORDER [None]
